FAERS Safety Report 7517385-X (Version None)
Quarter: 2011Q2

REPORT INFORMATION
  Report Type: 
  Country: None (occurrence: None)
  Receive Date: 20110601
  Receipt Date: 20100217
  Transmission Date: 20111010
  Serious: No
  Sender: FDA-Public Use
  Company Number: US-BAYER-201014283NA

PATIENT
  Age: 59 Year
  Sex: Female

DRUGS (1)
  1. AVELOX [Suspect]
     Indication: INFLUENZA
     Dosage: 400 MG, QD
     Route: 048
     Dates: start: 20100212, end: 20100213

REACTIONS (2)
  - TREMOR [None]
  - HYPOAESTHESIA [None]
